FAERS Safety Report 14941931 (Version 1)
Quarter: 2018Q2

REPORT INFORMATION
  Report Type: Spontaneous
  Country: FR (occurrence: FR)
  Receive Date: 20180527
  Receipt Date: 20180527
  Transmission Date: 20180711
  Serious: Yes (Other)
  Sender: FDA-Public Use
  Company Number: FR-MERCK KGAA-2048498

PATIENT
  Age: 59 Year
  Sex: Female

DRUGS (1)
  1. NOVOTHYROX [Suspect]
     Active Substance: LEVOTHYROXINE SODIUM
     Indication: PRODUCT USED FOR UNKNOWN INDICATION
     Dates: start: 2017

REACTIONS (22)
  - Oedema [None]
  - Decreased interest [None]
  - Blood calcium decreased [Not Recovered/Not Resolved]
  - Asthenia [Recovering/Resolving]
  - Limb discomfort [None]
  - Blood thyroid stimulating hormone decreased [Recovered/Resolved]
  - Diarrhoea [Recovering/Resolving]
  - Loss of personal independence in daily activities [None]
  - Mood altered [None]
  - Dizziness [Recovering/Resolving]
  - Libido decreased [None]
  - Tachycardia [Recovering/Resolving]
  - Hyperhidrosis [Recovering/Resolving]
  - Palpitations [None]
  - Fatigue [None]
  - Decreased activity [None]
  - Muscle spasms [Recovering/Resolving]
  - Headache [Recovering/Resolving]
  - Social avoidant behaviour [None]
  - Discomfort [None]
  - Dyspnoea [Recovering/Resolving]
  - Major depression [Recovering/Resolving]

NARRATIVE: CASE EVENT DATE: 201707
